FAERS Safety Report 20965765 (Version 3)
Quarter: 2022Q3

REPORT INFORMATION
  Report Type: Spontaneous
  Country: CA (occurrence: CA)
  Receive Date: 20220616
  Receipt Date: 20220723
  Transmission Date: 20221027
  Serious: Yes (Other)
  Sender: FDA-Public Use
  Company Number: CA-CELLTRION INC.-2022CA006186

PATIENT

DRUGS (5)
  1. INFLECTRA [Suspect]
     Active Substance: INFLIXIMAB-DYYB
     Indication: Ankylosing spondylitis
     Dosage: 300 MG INDUCTION DOSES AT WEEK 0, 2, AND 6, THEN EVERY 8 WEEKS
     Route: 042
     Dates: start: 20220224
  2. INFLECTRA [Suspect]
     Active Substance: INFLIXIMAB-DYYB
     Dosage: 300 MG INDUCTION DOSES AT WEEK 0, 2, AND 6
     Route: 042
     Dates: start: 20220224, end: 20220407
  3. INFLECTRA [Suspect]
     Active Substance: INFLIXIMAB-DYYB
     Dosage: INDUCTION DOSES AT WEEK 0, 2, AND 6, THEN EVERY 8 WEEKS
     Route: 042
     Dates: start: 20220310, end: 20220407
  4. INFLECTRA [Suspect]
     Active Substance: INFLIXIMAB-DYYB
     Dosage: INDUCTION DOSES AT WEEK 0, 2, AND 6, THEN EVERY 8 WEEKS
     Route: 042
     Dates: start: 20220407
  5. INFLECTRA [Suspect]
     Active Substance: INFLIXIMAB-DYYB
     Dosage: 300 MG, EVERY 6 WEEKS
     Route: 042
     Dates: start: 20220606

REACTIONS (22)
  - Ankylosing spondylitis [Unknown]
  - Crohn^s disease [Recovering/Resolving]
  - Off label use [Unknown]
  - Anxiety [Unknown]
  - Blood pressure decreased [Recovered/Resolved]
  - Chills [Recovered/Resolved]
  - Chills [Unknown]
  - Chills [Not Recovered/Not Resolved]
  - Chest discomfort [Unknown]
  - Dizziness [Unknown]
  - Erythema [Unknown]
  - Fistula [Unknown]
  - Flushing [Unknown]
  - Feeling cold [Unknown]
  - Fear [Unknown]
  - Heart rate decreased [Recovered/Resolved]
  - Malaise [Unknown]
  - Nausea [Unknown]
  - Oxygen saturation decreased [Recovered/Resolved]
  - Pallor [Not Recovered/Not Resolved]
  - Drug level below therapeutic [Unknown]
  - Rash macular [Unknown]

NARRATIVE: CASE EVENT DATE: 20220101
